FAERS Safety Report 23755552 (Version 1)
Quarter: 2024Q2

REPORT INFORMATION
  Report Type: Spontaneous
  Country: IT (occurrence: IT)
  Receive Date: 20240418
  Receipt Date: 20240418
  Transmission Date: 20240716
  Serious: Yes (Hospitalization)
  Sender: FDA-Public Use
  Company Number: IT-MYLANLABS-2024M1032685

PATIENT
  Age: 30 Year
  Sex: Male

DRUGS (5)
  1. FEBUXOSTAT [Suspect]
     Active Substance: FEBUXOSTAT
     Indication: Hypoxanthine-guanine phosphoribosyl transferase deficiency
     Dosage: 80 MILLIGRAM, QD
     Route: 065
  2. FEBUXOSTAT [Suspect]
     Active Substance: FEBUXOSTAT
     Dosage: 80 MILLIGRAM, QOD (REDUCED TO 80MG ONCE DAILY ON ALTERNATE DAYS)
     Route: 065
  3. FOLIC ACID [Concomitant]
     Active Substance: FOLIC ACID
     Indication: Hypoxanthine-guanine phosphoribosyl transferase deficiency
     Dosage: 5 MILLIGRAM, QD
     Route: 065
  4. POTASSIUM CITRATE [Concomitant]
     Active Substance: POTASSIUM CITRATE
     Indication: Hypoxanthine-guanine phosphoribosyl transferase deficiency
     Dosage: 3.5 GRAM, BID
     Route: 065
  5. VITAMIN B12 [Concomitant]
     Active Substance: CYANOCOBALAMIN
     Indication: Hypoxanthine-guanine phosphoribosyl transferase deficiency
     Dosage: 1000 INTERNATIONAL UNIT, QW
     Route: 065

REACTIONS (4)
  - Nephrolithiasis [Unknown]
  - Hydronephrosis [Unknown]
  - Urinary tract infection [Unknown]
  - Off label use [Unknown]
